FAERS Safety Report 23305232 (Version 2)
Quarter: 2024Q3

REPORT INFORMATION
  Report Type: Spontaneous
  Country: IT (occurrence: IT)
  Receive Date: 20231218
  Receipt Date: 20240918
  Transmission Date: 20241016
  Serious: Yes (Other)
  Sender: AMGEN
  Company Number: IT-AMGEN-ITASP2023222963

PATIENT

DRUGS (2)
  1. ADALIMUMAB [Suspect]
     Active Substance: ADALIMUMAB
     Indication: Juvenile idiopathic arthritis
     Dosage: UNK
     Route: 065
  2. ADALIMUMAB [Suspect]
     Active Substance: ADALIMUMAB
     Indication: Uveitis

REACTIONS (8)
  - Juvenile idiopathic arthritis [Unknown]
  - Uveitis [Unknown]
  - Drug specific antibody [Unknown]
  - Adverse event [Unknown]
  - Gastrointestinal disorder [Unknown]
  - Injection site pain [Unknown]
  - Injection site reaction [Unknown]
  - Rash [Unknown]
